FAERS Safety Report 16260030 (Version 1)
Quarter: 2019Q2

REPORT INFORMATION
  Report Type: Spontaneous
  Country: NL (occurrence: NL)
  Receive Date: 20190501
  Receipt Date: 20190501
  Transmission Date: 20190711
  Serious: Yes (Hospitalization)
  Sender: FDA-Public Use
  Company Number: NL-TEVA-2019-NL-1043236

PATIENT
  Age: 67 Year
  Sex: Female
  Weight: 92 kg

DRUGS (11)
  1. CALCIUMCARB/COLECAL BRUISGR 1,25G/880IE (500MG CA); [Concomitant]
     Dosage: 2 X PER DAY 1 PIECE,
  2. LEVOTHYROXINE TABLET  25UG (NATRIUM) [Concomitant]
     Dosage: 25 MICROGRAM DAILY; 1 X PER DAY 1 PIECE
  3. ALVESCO 160 AEROSOL 160MCG/DO SPBS  60DO + INH [Concomitant]
     Dosage: 4 TIMES A DAY, 1 DOSE
  4. OMEPRAZOL CAPSULE MSR 20MG [Concomitant]
     Active Substance: OMEPRAZOLE
     Dosage: 1 X PER DAY 2 PIECE
  5. SEROXAT TABLET FILMOMHULD 20MG [Concomitant]
     Dosage: 40 MILLIGRAM DAILY; 1 X PER DAY 2 PIECE
  6. NASONEX NEUSSPRAY 50MCG/DO 140DO [Concomitant]
     Dosage: 2 X PER DAY 1 DOSE IN BOTH NOSTRILS
  7. IPRATROPIUM INHALATIECAPSULE 40UG [Concomitant]
     Dosage: IF NECESSARY, INHALATION
  8. OXIS TURBUHALER INHALPDR  6MCG/DO 60DO [Concomitant]
     Dosage: 2 TO 4 X PER DAY 2 DOSE, TURBUHALER
  9. AMOXICILLINE CAPSULE, 500 MG (MILLIGRAM) [Suspect]
     Active Substance: AMOXICILLIN
     Indication: RESPIRATORY TRACT INFECTION
     Dosage: 3X PER DAY
     Dates: start: 20190401, end: 20190401
  10. LISINOPRIL TABLET 10MG [Concomitant]
     Active Substance: LISINOPRIL
     Dosage: 10 MILLIGRAM DAILY; 1 X PER DAY 1
  11. HYDROCHLOORTHIAZIDE TABLET 12,5MG [Concomitant]
     Active Substance: HYDROCHLOROTHIAZIDE
     Dosage: 12 MILLIGRAM DAILY; 1 X PER DAY 2 PIECE

REACTIONS (2)
  - Rash generalised [Recovered/Resolved]
  - Pruritus generalised [Recovered/Resolved]

NARRATIVE: CASE EVENT DATE: 20190401
